FAERS Safety Report 7564478-7 (Version None)
Quarter: 2011Q2

REPORT INFORMATION
  Report Type: 
  Country: None (occurrence: None)
  Receive Date: 20110622
  Receipt Date: 20110615
  Transmission Date: 20111010
  Serious: Yes (Death, Hospitalization, Other)
  Sender: FDA-Public Use
  Company Number: PHHY2011DE27970

PATIENT
  Sex: Male
  Weight: 84 kg

DRUGS (6)
  1. NEBIVOLOL HCL [Concomitant]
     Indication: HYPERTENSION
     Dosage: 2.5MG, DAILY
     Route: 048
  2. CLOPIDOGREL [Concomitant]
     Indication: CORONARY ARTERY DISEASE
  3. EXJADE [Suspect]
     Indication: IRON OVERLOAD
     Dosage: 1750 MG, DAILY
     Route: 048
     Dates: start: 20110214, end: 20110322
  4. TAMSULOSIN HCL [Concomitant]
     Indication: BENIGN PROSTATIC HYPERPLASIA
     Dosage: 0.4 MG , DAILY
     Route: 048
  5. HYDROXYUREA [Concomitant]
     Dosage: UP TO 2.5G PER DAY
     Route: 048
     Dates: start: 20110322
  6. ASPIRIN [Concomitant]
     Indication: CORONARY ARTERY DISEASE

REACTIONS (10)
  - MUCOSAL INFLAMMATION [None]
  - GENERAL PHYSICAL HEALTH DETERIORATION [None]
  - GASTROINTESTINAL SOUNDS ABNORMAL [None]
  - MELAENA [None]
  - ILEUS PARALYTIC [None]
  - GASTRITIS HAEMORRHAGIC [None]
  - NAUSEA [None]
  - BLAST CRISIS IN MYELOGENOUS LEUKAEMIA [None]
  - VOMITING [None]
  - LEUKOCYTOSIS [None]
